FAERS Safety Report 23135581 (Version 1)
Quarter: 2023Q4

REPORT INFORMATION
  Report Type: Report from Study
  Country: CN (occurrence: CN)
  Receive Date: 20231101
  Receipt Date: 20231101
  Transmission Date: 20240110
  Serious: Yes (Death)
  Sender: FDA-Public Use
  Company Number: CN-PFIZER INC-PV202300174847

PATIENT
  Age: 64 Year
  Sex: Female
  Weight: 63 kg

DRUGS (5)
  1. CYTARABINE [Suspect]
     Active Substance: CYTARABINE
     Indication: Acute myeloid leukaemia
     Dosage: 160 MG, 1X/DAY
     Route: 041
     Dates: start: 20230908, end: 20230914
  2. INVESTIGATIONAL PRODUCT [Suspect]
     Active Substance: INVESTIGATIONAL PRODUCT
     Indication: Acute myeloid leukaemia
     Dosage: UNK, 1X/DAY
     Route: 041
     Dates: start: 20230907, end: 20230907
  3. INVESTIGATIONAL PRODUCT [Suspect]
     Active Substance: INVESTIGATIONAL PRODUCT
     Dosage: UNK, 2X/DAY (Q12H)
     Route: 041
     Dates: start: 20230908, end: 20230916
  4. MITOXANTRONE [Suspect]
     Active Substance: MITOXANTRONE HYDROCHLORIDE
     Indication: Acute myeloid leukaemia
     Dosage: 12.8 MG, 1X/DAY, 25/12.5 MILLIGRAM PER MILILITRE
     Route: 041
     Dates: start: 20230908, end: 20230910
  5. ETOPOSIDE [Suspect]
     Active Substance: ETOPOSIDE
     Indication: Acute myeloid leukaemia
     Dosage: 160 MG, 1X/DAY, 0.1/5 GRAM PER MILLILITRE
     Route: 041
     Dates: start: 20230908, end: 20230910

REACTIONS (1)
  - Septic shock [Fatal]

NARRATIVE: CASE EVENT DATE: 20230927
